FAERS Safety Report 8511855-3 (Version None)
Quarter: 2012Q3

REPORT INFORMATION
  Report Type: 
  Country: None (occurrence: None)
  Receive Date: 20120716
  Receipt Date: 20120711
  Transmission Date: 20120928
  Serious: Yes (Other)
  Sender: FDA-Public Use
  Company Number: PHHY2012TR059164

PATIENT
  Sex: Female

DRUGS (2)
  1. CHORIONIC GONADOTROPIN [Concomitant]
     Dosage: 10.000 IU, UNK
     Route: 030
  2. FEMARA [Suspect]
     Dosage: 2.5 MG/DAY
     Route: 048

REACTIONS (2)
  - MATERNAL EXPOSURE DURING PREGNANCY [None]
  - ABORTION SPONTANEOUS [None]
